FAERS Safety Report 6736245-5 (Version None)
Quarter: 2010Q2

REPORT INFORMATION
  Report Type: 
  Country: None (occurrence: None)
  Receive Date: 20100521
  Receipt Date: 20100512
  Transmission Date: 20101027
  Serious: Yes (Other)
  Sender: FDA-Public Use
  Company Number: DE-JNJFOC-20100506496

PATIENT

DRUGS (1)
  1. REMICADE [Suspect]
     Indication: INFLAMMATION
     Route: 042

REACTIONS (4)
  - ANGIOEDEMA [None]
  - BLISTER [None]
  - ECZEMA [None]
  - SKIN EXFOLIATION [None]
